FAERS Safety Report 5578857-0 (Version None)
Quarter: 2007Q4

REPORT INFORMATION
  Report Type: 
  Country: None (occurrence: None)
  Receive Date: 20071228
  Receipt Date: 20071217
  Transmission Date: 20080405
  Serious: Yes (Death)
  Sender: FDA-Public Use
  Company Number: CLOF-1000001

PATIENT

DRUGS (3)
  1. CLOLAR (CLOFARABINE) SOLUTION FOR INFUSION [Suspect]
     Indication: ACUTE MYELOID LEUKAEMIA
     Dosage: INTRAVENOUS
     Route: 042
  2. CYTARABINE (CYTARABINE) INTRAVENOUS INFUSION [Suspect]
     Indication: ACUTE MYELOID LEUKAEMIA
  3. CYTARABINE (CYTARABINE) INTRAVENOUS INFUSION [Suspect]
     Indication: MYELODYSPLASTIC SYNDROME

REACTIONS (1)
  - DEATH [None]
